FAERS Safety Report 12463899 (Version 3)
Quarter: 2016Q4

REPORT INFORMATION
  Report Type: Report from Study
  Country: DE (occurrence: DE)
  Receive Date: 20160614
  Receipt Date: 20161104
  Transmission Date: 20170207
  Serious: No
  Sender: FDA-Public Use
  Company Number: PHHY2016DE079709

PATIENT
  Sex: Male

DRUGS (5)
  1. COSENTYX [Suspect]
     Active Substance: SECUKINUMAB
     Dosage: 300 MG, PER APPLICATION
     Route: 058
     Dates: start: 20160229
  2. COSENTYX [Suspect]
     Active Substance: SECUKINUMAB
     Dosage: 300 MG, PER APPLICATION
     Route: 058
     Dates: start: 20160314
  3. COSENTYX [Suspect]
     Active Substance: SECUKINUMAB
     Indication: PSORIASIS
     Dosage: 300 MG, PER APPLICATION
     Route: 058
     Dates: start: 20160223
  4. COSENTYX [Suspect]
     Active Substance: SECUKINUMAB
     Dosage: 300 MG, PER APPLICATION
     Route: 058
     Dates: start: 20160307
  5. CLOBETASOL [Concomitant]
     Active Substance: CLOBETASOL
     Indication: PSORIASIS
     Dosage: UNK
     Route: 061
     Dates: start: 20110822

REACTIONS (1)
  - Weight increased [Recovered/Resolved]

NARRATIVE: CASE EVENT DATE: 201603
